FAERS Safety Report 7608220-X (Version None)
Quarter: 2011Q3

REPORT INFORMATION
  Report Type: 
  Country: None (occurrence: None)
  Receive Date: 20110714
  Receipt Date: 20110707
  Transmission Date: 20111222
  Serious: Yes (Hospitalization, Other)
  Sender: FDA-Public Use
  Company Number: US-JNJFOC-20110101068

PATIENT
  Sex: Female
  Weight: 86.18 kg

DRUGS (17)
  1. DURAGESIC-100 [Suspect]
     Route: 062
     Dates: start: 20110601
  2. NEXIUM [Concomitant]
     Indication: GASTROOESOPHAGEAL REFLUX DISEASE
     Route: 048
  3. PERCOCET [Concomitant]
     Indication: BREAKTHROUGH PAIN
     Route: 048
  4. SONATA [Concomitant]
     Indication: SLEEP DISORDER THERAPY
     Route: 048
     Dates: start: 20040101
  5. LEXAPRO [Concomitant]
     Indication: ANXIETY
     Route: 048
     Dates: start: 20010101
  6. THYROID PREPARATIONS [Concomitant]
     Indication: THYROID DISORDER
     Route: 048
  7. DURAGESIC-100 [Suspect]
     Indication: BACK PAIN
     Route: 062
     Dates: start: 20070101, end: 20100101
  8. DURAGESIC-100 [Suspect]
     Route: 062
  9. DURAGESIC-100 [Suspect]
     Route: 062
     Dates: start: 20110601
  10. LEXAPRO [Concomitant]
     Indication: DEPRESSION
     Route: 048
     Dates: start: 20010101
  11. DURAGESIC-100 [Suspect]
     Route: 062
     Dates: start: 20090101
  12. DURAGESIC-100 [Suspect]
     Route: 062
     Dates: start: 20100101, end: 20110101
  13. DURAGESIC-100 [Suspect]
     Route: 062
  14. DURAGESIC-100 [Suspect]
     Indication: PAIN
     Route: 062
     Dates: start: 20070101, end: 20100101
  15. DURAGESIC-100 [Suspect]
     Route: 062
     Dates: start: 20090101
  16. DURAGESIC-100 [Suspect]
     Route: 062
     Dates: start: 20100101, end: 20110101
  17. NEXIUM [Concomitant]
     Route: 048
     Dates: start: 20010101

REACTIONS (14)
  - WEIGHT INCREASED [None]
  - FEELING ABNORMAL [None]
  - RASH [None]
  - ARTHROPATHY [None]
  - INAPPROPRIATE SCHEDULE OF DRUG ADMINISTRATION [None]
  - APPLICATION SITE PRURITUS [None]
  - MEMORY IMPAIRMENT [None]
  - LYME DISEASE [None]
  - APPLICATION SITE PAIN [None]
  - APPLICATION SITE ERYTHEMA [None]
  - EXPIRED DRUG ADMINISTERED [None]
  - DRUG ADMINISTERED AT INAPPROPRIATE SITE [None]
  - DRUG INEFFECTIVE [None]
  - RASH GENERALISED [None]
